FAERS Safety Report 14822846 (Version 1)
Quarter: 2018Q2

REPORT INFORMATION
  Report Type: Spontaneous
  Country: CA (occurrence: CA)
  Receive Date: 20180427
  Receipt Date: 20180427
  Transmission Date: 20180711
  Serious: Yes (Other)
  Sender: FDA-Public Use
  Company Number: CA-SA-2018SA050076

PATIENT
  Age: 55 Year
  Sex: Female

DRUGS (2)
  1. METHOTREXATE SODIUM. [Suspect]
     Active Substance: METHOTREXATE SODIUM
     Indication: RHEUMATOID ARTHRITIS
     Route: 058
  2. LEFLUNOMIDE. [Suspect]
     Active Substance: LEFLUNOMIDE
     Route: 048

REACTIONS (9)
  - Nasopharyngitis [Unknown]
  - Influenza [Unknown]
  - Pain [Unknown]
  - Aphonia [Unknown]
  - Bronchitis [Unknown]
  - Pneumonia [Unknown]
  - Pyrexia [Unknown]
  - Cough [Unknown]
  - Diarrhoea [Unknown]
